FAERS Safety Report 6968800-1 (Version None)
Quarter: 2010Q3

REPORT INFORMATION
  Report Type: 
  Country: None (occurrence: None)
  Receive Date: 20100907
  Receipt Date: 20100825
  Transmission Date: 20110219
  Serious: Yes (Other)
  Sender: FDA-Public Use
  Company Number: PHHY2010US39021

PATIENT
  Sex: Male
  Weight: 235 kg

DRUGS (1)
  1. RECLAST [Suspect]
     Indication: OSTEOPOROSIS
     Dosage: UNK
     Route: 042
     Dates: start: 20100610

REACTIONS (6)
  - ABNORMAL DREAMS [None]
  - DYSPNOEA [None]
  - HALLUCINATION [None]
  - HYPOXIA [None]
  - INFLUENZA LIKE ILLNESS [None]
  - PYREXIA [None]
